FAERS Safety Report 9682822 (Version 2)
Quarter: 2013Q4

REPORT INFORMATION
  Report Type: Report from Study
  Country: PL (occurrence: PL)
  Receive Date: 20131112
  Receipt Date: 20131112
  Transmission Date: 20140711
  Serious: No
  Sender: FDA-Public Use
  Company Number: PHHY2012PL031729

PATIENT
  Age: 55 Year
  Sex: Male

DRUGS (3)
  1. IMATINIB [Suspect]
     Indication: CHRONIC MYELOID LEUKAEMIA
     Dosage: 400 MG, QD
     Route: 048
     Dates: start: 20091102, end: 201006
  2. NILOTINIB [Suspect]
     Indication: CHRONIC MYELOID LEUKAEMIA
     Dosage: 400 MG, BID
     Dates: start: 20110121
  3. DASATINIB [Suspect]
     Indication: CHRONIC MYELOID LEUKAEMIA
     Dosage: 100 MG, PER DAY
     Dates: start: 20100625

REACTIONS (4)
  - No therapeutic response [Recovered/Resolved]
  - Thrombocytopenia [Recovered/Resolved]
  - Therapeutic response decreased [Recovering/Resolving]
  - Poliomyelitis [Unknown]
